FAERS Safety Report 7722342-4 (Version None)
Quarter: 2011Q3

REPORT INFORMATION
  Report Type: 
  Country: None (occurrence: None)
  Receive Date: 20110831
  Receipt Date: 20110822
  Transmission Date: 20111222
  Serious: Yes (Other)
  Sender: FDA-Public Use
  Company Number: US-US-EMD SERONO, INC.-7075472

PATIENT
  Sex: Female
  Weight: 41 kg

DRUGS (4)
  1. IBUPROFEN [Concomitant]
     Indication: PREMEDICATION
  2. REBIF [Suspect]
     Route: 058
  3. REBIF [Suspect]
     Indication: PRODUCT USED FOR UNKNOWN INDICATION
     Route: 058
     Dates: start: 20110708
  4. TYLENOL-500 [Concomitant]
     Indication: PREMEDICATION

REACTIONS (4)
  - UTERINE DISORDER [None]
  - WEIGHT DECREASED [None]
  - INFLUENZA LIKE ILLNESS [None]
  - INJECTION SITE ERYTHEMA [None]
